FAERS Safety Report 9302522 (Version 2)
Quarter: 2013Q2

REPORT INFORMATION
  Report Type: Spontaneous
  Country: US (occurrence: US)
  Receive Date: 20130522
  Receipt Date: 20130530
  Transmission Date: 20140414
  Serious: No
  Sender: FDA-Public Use
  Company Number: US-BIOGENIDEC-2013BI045848

PATIENT
  Sex: Female

DRUGS (2)
  1. TYSABRI [Suspect]
     Indication: MULTIPLE SCLEROSIS
     Route: 042
     Dates: start: 20120221
  2. AMPYRA [Concomitant]
     Indication: MULTIPLE SCLEROSIS
     Dates: start: 20111001

REACTIONS (9)
  - Memory impairment [Unknown]
  - Insomnia [Unknown]
  - Vitamin D decreased [Unknown]
  - Feeling hot [Unknown]
  - Frustration [Unknown]
  - Fatigue [Unknown]
  - Lethargy [Unknown]
  - Multiple sclerosis [Unknown]
  - Drug ineffective [Unknown]
